FAERS Safety Report 4489035-0 (Version None)
Quarter: 2004Q4

REPORT INFORMATION
  Report Type: 
  Country: None (occurrence: None)
  Receive Date: 20041026
  Receipt Date: 20041013
  Transmission Date: 20050328
  Serious: Yes (Other)
  Sender: FDA-Public Use
  Company Number: EWC040739988

PATIENT
  Age: 65 Year
  Sex: Female

DRUGS (3)
  1. XIGRIS [Suspect]
     Indication: PERITONITIS
     Dosage: 24 UG/KG/HR
     Dates: start: 20040713, end: 20040715
  2. XIGRIS [Suspect]
     Indication: SEPSIS
     Dosage: 24 UG/KG/HR
     Dates: start: 20040713, end: 20040715
  3. FRAXIPARINE(NADROPARIN CALCIUM) [Concomitant]

REACTIONS (4)
  - FIBRIN D DIMER INCREASED [None]
  - PROTHROMBIN TIME PROLONGED [None]
  - PYREXIA [None]
  - THROMBOCYTOPENIA [None]
